FAERS Safety Report 17949285 (Version 1)
Quarter: 2020Q2

REPORT INFORMATION
  Report Type: Spontaneous
  Country: US (occurrence: US)
  Receive Date: 20200626
  Receipt Date: 20200626
  Transmission Date: 20200714
  Serious: Yes (Hospitalization)
  Sender: FDA-Public Use
  Company Number: None

PATIENT
  Sex: Female

DRUGS (12)
  1. MONTELUKAST [Concomitant]
     Active Substance: MONTELUKAST SODIUM
  2. ONDANSETRON [Concomitant]
     Active Substance: ONDANSETRON
  3. AMOX/K CLAV [Concomitant]
     Active Substance: AMOXICILLIN\CLAVULANATE POTASSIUM
  4. PROAIR HFA [Concomitant]
     Active Substance: ALBUTEROL SULFATE
  5. GAVILYTE G [Concomitant]
     Active Substance: POLYETHYLENE GLYCOL 3350\POTASSIUM CHLORIDE\SODIUM BICARBONATE\SODIUM CHLORIDE\SODIUM SULFATE ANHYDROUS
  6. TRIAMCINOLON CRE [Concomitant]
  7. PULMOZYME [Suspect]
     Active Substance: DORNASE ALFA
     Indication: CYSTIC FIBROSIS
     Dosage: ?          OTHER ROUTE:INH EVERYOTHER28D?
     Dates: start: 20180630
  8. AMOXILLIN [Concomitant]
     Active Substance: AMOXICILLIN
  9. CREON [Concomitant]
     Active Substance: PANCRELIPASE AMYLASE\PANCRELIPASE LIPASE\PANCRELIPASE PROTEASE
  10. METRONIDAZOL [Concomitant]
     Active Substance: METRONIDAZOLE
  11. VANCOMYCIN [Concomitant]
     Active Substance: VANCOMYCIN
  12. SODIUM CHLOR NEB 7% [Concomitant]

REACTIONS (3)
  - Product dose omission [None]
  - Gastric disorder [None]
  - Escherichia infection [None]
